FAERS Safety Report 24108336 (Version 1)
Quarter: 2024Q3

REPORT INFORMATION
  Report Type: Spontaneous
  Country: US (occurrence: US)
  Receive Date: 20240718
  Receipt Date: 20240718
  Transmission Date: 20241016
  Serious: No
  Sender: AVERITAS
  Company Number: US-GRUNENTHAL-2024-121330

PATIENT
  Sex: Male

DRUGS (3)
  1. QUTENZA [Suspect]
     Active Substance: CAPSAICIN
     Indication: Post herpetic neuralgia
     Dosage: UNK
     Route: 061
  2. QUTENZA [Suspect]
     Active Substance: CAPSAICIN
     Indication: Muscle discomfort
  3. QUTENZA [Suspect]
     Active Substance: CAPSAICIN
     Indication: Chest discomfort

REACTIONS (3)
  - Application site pain [Unknown]
  - Muscle tightness [Unknown]
  - Application site discomfort [Unknown]
